FAERS Safety Report 8301204-8 (Version None)
Quarter: 2012Q2

REPORT INFORMATION
  Report Type: 
  Country: None (occurrence: None)
  Receive Date: 20120420
  Receipt Date: 20120420
  Transmission Date: 20120825
  Serious: Yes (Other)
  Sender: FDA-Public Use
  Company Number: None

PATIENT
  Sex: Female
  Weight: 108.86 kg

DRUGS (1)
  1. YAZ [Suspect]
     Indication: CONTRACEPTION
     Dosage: ONE TABLET
     Dates: start: 20070721, end: 20070728

REACTIONS (10)
  - SUICIDAL IDEATION [None]
  - LIBIDO DECREASED [None]
  - WEIGHT INCREASED [None]
  - DEPRESSION [None]
  - NO THERAPEUTIC RESPONSE [None]
  - HOMICIDAL IDEATION [None]
  - ACTIVITIES OF DAILY LIVING IMPAIRED [None]
  - ANXIETY [None]
  - IMPAIRED SELF-CARE [None]
  - PSYCHOTIC DISORDER [None]
